FAERS Safety Report 7606092 (Version 2)
Quarter: 2020Q3

REPORT INFORMATION
  Report Type: Spontaneous
  Country: FR (occurrence: FR)
  Receive Date: 20100924
  Receipt Date: 20100927
  Transmission Date: 20201105
  Serious: Yes (Death)
  Sender: FDA-Public Use
  Company Number: FR-BAYER-201039232GPV

PATIENT
  Sex: Female

DRUGS (7)
  1. NEOSYNEPHRINE [Suspect]
     Active Substance: PHENYLEPHRINE HYDROCHLORIDE
     Route: 064
     Dates: start: 20100524, end: 20100524
  2. ERYTHROMYCIN. [Suspect]
     Active Substance: ERYTHROMYCIN
     Indication: INFECTION PROPHYLAXIS
     Route: 064
     Dates: start: 20100522, end: 20100524
  3. CELESTONE [Suspect]
     Active Substance: BETAMETHASONE
     Route: 064
     Dates: start: 20100523, end: 20100524
  4. EPHEDRINE. [Suspect]
     Active Substance: EPHEDRINE
     Route: 064
     Dates: start: 20100524, end: 20100524
  5. ATOSIBAN [Suspect]
     Active Substance: ATOSIBAN
     Indication: TOCOLYSIS
     Dates: start: 20100524, end: 20100524
  6. VOLUVEN [Suspect]
     Active Substance: HYDROXYETHYL STARCH 130/0.4
     Route: 064
     Dates: start: 20100524, end: 20100524
  7. NIFEDIPINE. [Suspect]
     Active Substance: NIFEDIPINE
     Indication: TOCOLYSIS
     Route: 064
     Dates: start: 20100524, end: 20100524

REACTIONS (1)
  - Foetal death [Fatal]

NARRATIVE: CASE EVENT DATE: 20100524
